FAERS Safety Report 22202855 (Version 4)
Quarter: 2023Q4

REPORT INFORMATION
  Report Type: Report from Study
  Country: US (occurrence: None)
  Receive Date: 20230412
  Receipt Date: 20231019
  Transmission Date: 20240110
  Serious: Yes (Hospitalization, Other)
  Sender: FDA-Public Use
  Company Number: US-ROCHE-3263524

PATIENT
  Age: 61 Year
  Sex: Female
  Weight: 79.2 kg

DRUGS (6)
  1. ATEZOLIZUMAB [Suspect]
     Active Substance: ATEZOLIZUMAB
     Indication: Papillary renal cell carcinoma
     Dosage: ON 22/FEB/2023, LAST DOSE OF ATEZOLIZUMAB WAS ADMINISTERED.?ON 23/NOV/2022, LAST DOSE OF ATEZOLIZUMA
     Route: 065
  2. BEVACIZUMAB [Suspect]
     Active Substance: BEVACIZUMAB
     Indication: Papillary renal cell carcinoma
     Dosage: ON 22/FEB/2023, LAST DOSE OF BEVACIZUMAB WAS ADMINISTERED.?ON 23/NOV/2022, LAST DOSE OF BEVACIZUMAB
     Route: 042
  3. ERLOTINIB [Suspect]
     Active Substance: ERLOTINIB
     Indication: Papillary renal cell carcinoma
     Dosage: ON 13/MAR/2023, LAST DOSE OF ERLOTINIB WAS ADMINISTERED.?ON 06/DEC/2022, LAST DOSE OF ERLOTINIB WAS
     Route: 048
  4. APIXABAN [Concomitant]
     Active Substance: APIXABAN
     Dates: start: 20230314
  5. LOVENOX [Concomitant]
     Active Substance: ENOXAPARIN SODIUM
     Route: 058
  6. IBUPROFEN [Concomitant]
     Active Substance: IBUPROFEN

REACTIONS (2)
  - Acute kidney injury [Recovering/Resolving]
  - Pulmonary embolism [Recovering/Resolving]

NARRATIVE: CASE EVENT DATE: 20221207
